FAERS Safety Report 15728903 (Version 1)
Quarter: 2018Q4

REPORT INFORMATION
  Report Type: Spontaneous
  Country: CN (occurrence: CN)
  Receive Date: 20181217
  Receipt Date: 20181217
  Transmission Date: 20190205
  Serious: Yes (Hospitalization)
  Sender: FDA-Public Use
  Company Number: PHHY2018CN177707

PATIENT
  Age: 8 Year
  Sex: Male

DRUGS (1)
  1. METHYLPREDNISOLONE. [Suspect]
     Active Substance: METHYLPREDNISOLONE
     Indication: PRODUCT USED FOR UNKNOWN INDICATION
     Dosage: UNK
     Route: 065

REACTIONS (4)
  - Aneurysm ruptured [Recovered/Resolved]
  - Duodenal perforation [Recovered/Resolved]
  - Haematochezia [Recovered/Resolved]
  - Upper gastrointestinal haemorrhage [Recovered/Resolved]
